FAERS Safety Report 26069482 (Version 1)
Quarter: 2025Q4

REPORT INFORMATION
  Report Type: Spontaneous
  Country: AU (occurrence: AU)
  Receive Date: 20251120
  Receipt Date: 20251120
  Transmission Date: 20260118
  Serious: Yes (Other)
  Sender: RANBAXY
  Company Number: AU-SUN PHARMACEUTICAL INDUSTRIES LTD-2025R1-537060

PATIENT
  Age: 31 Year
  Sex: Female

DRUGS (7)
  1. ITRACONAZOLE [Suspect]
     Active Substance: ITRACONAZOLE
     Indication: Trichophytosis
     Dosage: 100 MILLIGRAM, BID
     Route: 048
  2. ITRACONAZOLE [Suspect]
     Active Substance: ITRACONAZOLE
     Dosage: 150 MILLIGRAM, BID
     Route: 048
  3. BETAMETHASONE [Suspect]
     Active Substance: BETAMETHASONE
     Indication: Eczema
     Dosage: UNK
     Route: 065
  4. HYDROCORTISONE [Suspect]
     Active Substance: HYDROCORTISONE
     Indication: Eczema
     Dosage: UNK
     Route: 065
  5. TERBINAFINE [Suspect]
     Active Substance: TERBINAFINE
     Indication: Body tinea
     Dosage: 3WEEKS
     Route: 065
  6. CLOTRIMAZOLE [Suspect]
     Active Substance: CLOTRIMAZOLE
     Indication: Body tinea
     Dosage: 2MONTHS
     Route: 065
  7. KETOCONAZOLE [Suspect]
     Active Substance: KETOCONAZOLE
     Indication: Trichophytosis
     Dosage: 2%
     Route: 065

REACTIONS (2)
  - Exposure during pregnancy [Unknown]
  - Drug ineffective [Unknown]
